FAERS Safety Report 20869123 (Version 1)
Quarter: 2022Q2

REPORT INFORMATION
  Report Type: Spontaneous
  Country: US (occurrence: None)
  Receive Date: 20220520
  Receipt Date: 20220520
  Transmission Date: 20220721
  Serious: Yes (Other)
  Sender: FDA-Public Use
  Company Number: None

PATIENT
  Age: 29 Year
  Sex: Female

DRUGS (1)
  1. TALTZ [Suspect]
     Active Substance: IXEKIZUMAB
     Indication: Product used for unknown indication
     Route: 058

REACTIONS (7)
  - Injection site erythema [None]
  - Injection site swelling [None]
  - Injection site discomfort [None]
  - Depressed level of consciousness [None]
  - Psoriasis [None]
  - Symptom recurrence [None]
  - Hypersensitivity [None]
